FAERS Safety Report 9384088 (Version 4)
Quarter: 2013Q3

REPORT INFORMATION
  Report Type: Spontaneous
  Country: US (occurrence: US)
  Receive Date: 20130705
  Receipt Date: 20130812
  Transmission Date: 20140515
  Serious: Yes (Hospitalization)
  Sender: FDA-Public Use
  Company Number: US-JNJFOC-20130618871

PATIENT
  Age: 86 Year
  Sex: Male
  Weight: 72.8 kg

DRUGS (13)
  1. XARELTO [Suspect]
     Indication: CEREBROVASCULAR ACCIDENT PROPHYLAXIS
     Route: 048
  2. XARELTO [Suspect]
     Indication: ATRIAL FIBRILLATION
     Route: 048
  3. ASPIRIN [Suspect]
     Indication: PRODUCT USED FOR UNKNOWN INDICATION
     Route: 065
  4. CELEBREX [Suspect]
     Indication: PRODUCT USED FOR UNKNOWN INDICATION
     Route: 065
  5. SYNTHROID [Concomitant]
     Route: 065
  6. LIPITOR [Concomitant]
     Route: 065
  7. TOPROL XL [Concomitant]
     Route: 065
  8. METFORMIN [Concomitant]
     Route: 065
  9. SPIRIVA [Concomitant]
     Route: 065
  10. GABAPENTIN [Concomitant]
     Route: 065
  11. ADVAIR [Concomitant]
     Route: 065
  12. BUMEX [Concomitant]
     Route: 065
  13. PRILOSEC [Concomitant]
     Route: 065

REACTIONS (4)
  - International normalised ratio increased [Recovered/Resolved]
  - Lower gastrointestinal haemorrhage [Recovered/Resolved]
  - Renal failure [Recovering/Resolving]
  - Pneumonia [Unknown]
